FAERS Safety Report 5281204-5 (Version None)
Quarter: 2007Q1

REPORT INFORMATION
  Report Type: 
  Country: None (occurrence: None)
  Receive Date: 20070329
  Receipt Date: 20070322
  Transmission Date: 20070707
  Serious: Yes (Life-Threatening, Hospitalization, Other)
  Sender: FDA-Public Use
  Company Number: FR-ABBOTT-07P-056-0362749-00

PATIENT
  Age: 72 Year
  Sex: Male

DRUGS (3)
  1. ZECLAR [Suspect]
     Indication: BRONCHITIS
     Route: 048
     Dates: start: 20070221, end: 20070302
  2. TIEMONIUM/OPIUM/COLCHICINE (TIEMONIUM/OPIUM/COLCHICINE) [Interacting]
     Indication: GOUT
     Route: 048
     Dates: start: 20070221, end: 20070302
  3. PRINZIDE [Concomitant]
     Indication: HYPERTENSION

REACTIONS (11)
  - BONE MARROW FAILURE [None]
  - CARDIOVASCULAR INSUFFICIENCY [None]
  - DIARRHOEA [None]
  - DRUG INTERACTION [None]
  - DRUG TOXICITY [None]
  - NAUSEA [None]
  - RENAL FAILURE [None]
  - RESPIRATORY ARREST [None]
  - RHABDOMYOLYSIS [None]
  - SHOCK [None]
  - VOMITING [None]
